FAERS Safety Report 13795277 (Version 1)
Quarter: 2017Q3

REPORT INFORMATION
  Report Type: Spontaneous
  Country: FR (occurrence: FR)
  Receive Date: 20170726
  Receipt Date: 20170726
  Transmission Date: 20171127
  Serious: Yes (Hospitalization)
  Sender: FDA-Public Use
  Company Number: FR-ROCHE-1965927

PATIENT
  Age: 51 Year
  Sex: Male

DRUGS (3)
  1. ZOPICLONE [Suspect]
     Active Substance: ZOPICLONE
     Indication: SEDATION
     Route: 048
     Dates: start: 20170215, end: 20170215
  2. VALIUM [Suspect]
     Active Substance: DIAZEPAM
     Indication: SEDATION
     Route: 048
     Dates: start: 20170215, end: 20170215
  3. TERCIAN [Suspect]
     Active Substance: CYAMEMAZINE
     Indication: SEDATION
     Route: 048
     Dates: start: 20170215, end: 20170215

REACTIONS (3)
  - Coma scale abnormal [Recovered/Resolved]
  - Somnolence [Recovered/Resolved]
  - Toxicity to various agents [Recovered/Resolved]

NARRATIVE: CASE EVENT DATE: 20170215
